FAERS Safety Report 9837211 (Version 1)
Quarter: 2013Q4

REPORT INFORMATION
  Report Type: Spontaneous
  Country: US (occurrence: None)
  Receive Date: 20131205
  Receipt Date: 20131205
  Transmission Date: 20140711
  Serious: No
  Sender: FDA-Public Use
  Company Number: 163-POMAL-13090597

PATIENT
  Age: 83 Year
  Sex: Female

DRUGS (9)
  1. POMALYST (POMALIDOMIDE) (4 MILLIGRAM CAPSULES) [Suspect]
     Dosage: 4MG, 1 IN 1 D PO
     Route: 048
     Dates: start: 20130410
  2. ACYCLOVIR (ACICLOVIR) [Concomitant]
  3. ANTI-DIARRHEAL (LOPERAMIDE HYDROCHLORIDE) [Concomitant]
  4. ASPIRIN (ACETYLSALICYLIC ACID) [Concomitant]
  5. CALCIUM ASCORBATE (CALCIUM ASCORBATE) [Concomitant]
  6. DEXAMETHASONE (DEXAMETHASONE) [Concomitant]
  7. HYDROCHLOROTHIAZIDE (HYDROCHLOROTHIAZIDE) [Concomitant]
  8. LISINOPRIL (LISINOPRIL) [Concomitant]
  9. OMEPRAZOLE (OMEPRAZOLE) [Concomitant]

REACTIONS (1)
  - Plasma cell myeloma [None]
